FAERS Safety Report 7442025-8 (Version None)
Quarter: 2011Q2

REPORT INFORMATION
  Report Type: 
  Country: None (occurrence: None)
  Receive Date: 20110428
  Receipt Date: 20101214
  Transmission Date: 20111010
  Serious: Yes (Life-Threatening, Hospitalization, Other)
  Sender: FDA-Public Use
  Company Number: US-BAYER-200943912NA

PATIENT
  Age: 19 Year
  Sex: Female
  Weight: 60 kg

DRUGS (10)
  1. ZOLPIDEM [Concomitant]
     Dosage: 5 MG (DAILY DOSE), QD, ORAL
     Route: 048
  2. YASMIN [Suspect]
     Route: 048
     Dates: start: 20040801, end: 20081015
  3. MEDROXYPROGESTERONE [Concomitant]
     Indication: ORAL CONTRACEPTION
     Dosage: UNK
     Dates: start: 20040806
  4. ESOMEPRAZOLE MAGNESIUM [Concomitant]
     Dosage: IN THE MORNING
     Route: 048
  5. OXYCET [Concomitant]
     Dosage: 5 MG/325 MG TABLET 2 TAB ORALLY EVERY 6 HOURS
     Route: 048
  6. OCELLA [Suspect]
     Route: 048
     Dates: start: 20081001, end: 20090109
  7. NIFEREX [Concomitant]
     Dosage: 150 FORTE 1 CAP ORALLY TWICE DAILY WITH MEALS
     Route: 048
  8. IBUPROFEN [Concomitant]
     Dosage: 400 MG (DAILY DOSE), QID, ORAL
     Route: 048
  9. PERCOCET [Concomitant]
     Dosage: 5 MG/325 MG TABLET 2 TAB ORALLY EVERY 6 HOURS
     Route: 048
  10. DOCUSATE SODIUM [Concomitant]
     Dosage: 100 MG (DAILY DOSE), BID, ORAL
     Route: 048

REACTIONS (13)
  - DEPRESSION POSTOPERATIVE [None]
  - PULMONARY EMBOLISM [None]
  - SCAR [None]
  - LOSS OF CONSCIOUSNESS [None]
  - ORTHOSTATIC INTOLERANCE [None]
  - PAIN IN EXTREMITY [None]
  - EXERCISE TOLERANCE DECREASED [None]
  - DYSPNOEA [None]
  - RIGHT VENTRICULAR DYSFUNCTION [None]
  - STRESS [None]
  - PALPITATIONS [None]
  - CHEST PAIN [None]
  - PERICARDITIS [None]
